FAERS Safety Report 7454324-4 (Version None)
Quarter: 2011Q2

REPORT INFORMATION
  Report Type: 
  Country: None (occurrence: None)
  Receive Date: 20110503
  Receipt Date: 20110421
  Transmission Date: 20111010
  Serious: Yes (Other)
  Sender: FDA-Public Use
  Company Number: US-JNJFOC-20110410729

PATIENT
  Sex: Female
  Weight: 79.38 kg

DRUGS (2)
  1. FENTANYL-100 [Suspect]
     Indication: SURGERY
     Route: 062
  2. DURAGESIC [Suspect]
     Indication: SURGERY
     Route: 062

REACTIONS (1)
  - DIABETES MELLITUS [None]
